FAERS Safety Report 14144769 (Version 2)
Quarter: 2018Q2

REPORT INFORMATION
  Report Type: Spontaneous
  Country: DE (occurrence: DE)
  Receive Date: 20171031
  Receipt Date: 20180501
  Transmission Date: 20180711
  Serious: Yes (Congenital Anomaly, Other)
  Sender: FDA-Public Use
  Company Number: DE-TORRENT-00005582

PATIENT
  Age: 37 Year
  Sex: Female
  Weight: 70 kg

DRUGS (4)
  1. MARCUMAR [Concomitant]
     Active Substance: PHENPROCOUMON
     Indication: HYPERCOAGULATION
     Dosage: DAILY DOSE: 3 MG MILLGRAM(S) EVERY DAYS
     Route: 050
     Dates: start: 20040701
  2. L-THYROXINE [Concomitant]
     Active Substance: LEVOTHYROXINE
     Indication: HYPOTHYROIDISM
     Route: 050
  3. FOLIO FORTE [Concomitant]
     Active Substance: FOLIC ACID\VITAMINS
     Indication: PRODUCT USED FOR UNKNOWN INDICATION
  4. CITALOPRAM [Suspect]
     Active Substance: CITALOPRAM HYDROBROMIDE
     Indication: ANXIETY DISORDER
     Route: 050
     Dates: start: 20110801, end: 20151001

REACTIONS (4)
  - Paternal exposure during pregnancy [Unknown]
  - Exposure via body fluid [Unknown]
  - Foetal chromosome abnormality [Unknown]
  - Abortion spontaneous [Unknown]
